FAERS Safety Report 8775392 (Version 4)
Quarter: 2012Q4

REPORT INFORMATION
  Report Type: 
  Country: BE (occurrence: BE)
  Receive Date: 20120911
  Receipt Date: 20121003
  Transmission Date: 20130627
  Serious: Yes (Death, Life-Threatening, Hospitalization, Other)
  Sender: FDA-Public Use
  Company Number: BE-ABBOTT-12P-013-0975991-00

PATIENT
  Sex: Female
  Weight: 70 kg

DRUGS (3)
  1. HUMIRA [Suspect]
     Indication: CROHN^S DISEASE
     Route: 058
     Dates: start: 2009, end: 20120830
  2. LEDERTREXATE [Concomitant]
     Dates: start: 2004
  3. MEDROL [Concomitant]
     Dates: start: 201207

REACTIONS (6)
  - Hepatic failure [Fatal]
  - Cytomegalovirus hepatitis [Fatal]
  - Toxicity to various agents [Unknown]
  - Ascites [Unknown]
  - Generalised oedema [Unknown]
  - Hepatic enzyme abnormal [Unknown]
